APPROVED DRUG PRODUCT: INDOMETHACIN
Active Ingredient: INDOMETHACIN
Strength: 25MG
Dosage Form/Route: CAPSULE;ORAL
Application: A076666 | Product #001
Applicant: ABLE LABORATORIES INC
Approved: Dec 17, 2003 | RLD: No | RS: No | Type: DISCN